FAERS Safety Report 9986579 (Version 2)
Quarter: 2014Q1

REPORT INFORMATION
  Report Type: Report from Study
  Country: US (occurrence: US)
  Receive Date: 20140307
  Receipt Date: 20140307
  Transmission Date: 20141002
  Serious: No
  Sender: FDA-Public Use
  Company Number: US-ABBVIE-13P-163-1081277-00

PATIENT
  Age: 51 Year
  Sex: Male

DRUGS (7)
  1. HUMIRA [Suspect]
     Indication: PSORIASIS
     Route: 058
     Dates: start: 20120902
  2. HUMIRA [Suspect]
     Indication: PSORIASIS
     Route: 058
  3. ASPIRIN [Concomitant]
     Indication: PRODUCT USED FOR UNKNOWN INDICATION
     Dosage: DAILY
  4. CLOBETASOL [Concomitant]
     Indication: PRODUCT USED FOR UNKNOWN INDICATION
  5. CLOBEX [Concomitant]
     Indication: PRODUCT USED FOR UNKNOWN INDICATION
  6. TACLONEX [Concomitant]
     Indication: PRODUCT USED FOR UNKNOWN INDICATION
  7. CENTRUM [Concomitant]
     Indication: PRODUCT USED FOR UNKNOWN INDICATION

REACTIONS (4)
  - Sinus congestion [Not Recovered/Not Resolved]
  - Nasopharyngitis [Not Recovered/Not Resolved]
  - Injection site pain [Recovered/Resolved]
  - Injection site pain [Recovered/Resolved]
